FAERS Safety Report 15951111 (Version 1)
Quarter: 2019Q1

REPORT INFORMATION
  Report Type: Report from Study
  Country: MX (occurrence: MX)
  Receive Date: 20190212
  Receipt Date: 20190212
  Transmission Date: 20190417
  Serious: Yes (Hospitalization)
  Sender: FDA-Public Use
  Company Number: MX-BAYER-2019-015148

PATIENT
  Age: 59 Year
  Sex: Female

DRUGS (1)
  1. BETAFERON [Suspect]
     Active Substance: INTERFERON BETA-1B
     Dosage: 1 DF, QOD
     Dates: start: 20150601, end: 20181215

REACTIONS (5)
  - Dry mouth [Recovered/Resolved]
  - Oral pain [Not Recovered/Not Resolved]
  - Oral pain [Recovered/Resolved]
  - Product availability issue [Not Recovered/Not Resolved]
  - Speech disorder [Not Recovered/Not Resolved]

NARRATIVE: CASE EVENT DATE: 2015
